FAERS Safety Report 5805204-9 (Version None)
Quarter: 2008Q3

REPORT INFORMATION
  Report Type: 
  Country: None (occurrence: None)
  Receive Date: 20080707
  Receipt Date: 20080630
  Transmission Date: 20090109
  Serious: Yes (Hospitalization, Other)
  Sender: FDA-Public Use
  Company Number: 2006SP006403

PATIENT
  Age: 49 Year
  Sex: Female

DRUGS (4)
  1. PEG-INTRON [Suspect]
     Indication: HEPATITIS C
     Dosage: 120 MCG; ; SC, 120 MCG; ; SC
     Route: 058
     Dates: start: 20060101, end: 20060201
  2. PEG-INTRON [Suspect]
     Indication: HEPATITIS C
     Dosage: 120 MCG; ; SC, 120 MCG; ; SC
     Route: 058
     Dates: start: 20080515
  3. RIBAVIRIN [Suspect]
     Indication: HEPATITIS C
     Dosage: 1000 MG; ; PO, 1000 MG; ; PO
     Route: 048
     Dates: start: 20060101, end: 20060201
  4. RIBAVIRIN [Suspect]
     Indication: HEPATITIS C
     Dosage: 1000 MG; ; PO, 1000 MG; ; PO
     Route: 048
     Dates: start: 20060515

REACTIONS (8)
  - ADVERSE DRUG REACTION [None]
  - BLOOD COUNT ABNORMAL [None]
  - BONE DISORDER [None]
  - CONDITION AGGRAVATED [None]
  - CYST [None]
  - HEPATIC CIRRHOSIS [None]
  - INFECTION [None]
  - TREATMENT NONCOMPLIANCE [None]
